FAERS Safety Report 16022148 (Version 1)
Quarter: 2019Q1

REPORT INFORMATION
  Report Type: Spontaneous
  Country: DE (occurrence: DE)
  Receive Date: 20190301
  Receipt Date: 20190301
  Transmission Date: 20190418
  Serious: Yes (Other)
  Sender: FDA-Public Use
  Company Number: DE-ACCORD-109607

PATIENT
  Age: 1 Day
  Sex: Male
  Weight: 3.33 kg

DRUGS (5)
  1. FEMIBION [Concomitant]
     Indication: PROPHYLAXIS OF NEURAL TUBE DEFECT
     Dosage: 0.8 MG/D / 0.4-0.8 MG/D
     Route: 064
     Dates: start: 20170626, end: 20180411
  2. OXYTOCIN/OXYTOCIN CITRATE [Concomitant]
     Indication: LABOUR INDUCTION
     Route: 064
     Dates: start: 20180411, end: 20180411
  3. QUETIAPINE. [Suspect]
     Active Substance: QUETIAPINE
     Indication: BIPOLAR DISORDER
     Dosage: 50 MG/D
     Route: 064
     Dates: start: 20170626, end: 20180411
  4. L-THYROXIN HENNING [Concomitant]
     Active Substance: LEVOTHYROXINE SODIUM
     Indication: THYROID HORMONE REPLACEMENT THERAPY
     Dosage: 200 MICRO G/D
     Route: 064
     Dates: start: 20170626, end: 20180411
  5. HYPNOREX RETARD [Suspect]
     Active Substance: LITHIUM CARBONATE
     Indication: BIPOLAR DISORDER
     Dosage: 1400 MG/D / DOSAGE INITIALLY 1000MG/D, INCREASED UP TO 1400MG/D,
     Route: 064
     Dates: start: 20170626, end: 20180411

REACTIONS (5)
  - Hypoglycaemia neonatal [Recovered/Resolved]
  - Convulsion neonatal [Recovered/Resolved]
  - Respiratory disorder neonatal [Recovered/Resolved]
  - Selective eating disorder [Recovered/Resolved]
  - Patent ductus arteriosus [Unknown]

NARRATIVE: CASE EVENT DATE: 20180411
